FAERS Safety Report 8369886-2 (Version None)
Quarter: 2012Q1

REPORT INFORMATION
  Report Type: 
  Country: None (occurrence: None)
  Receive Date: 20120323
  Receipt Date: 20111128
  Transmission Date: 20120608
  Serious: Yes (Hospitalization)
  Sender: FDA-Public Use
  Company Number: 163-21880-11081080

PATIENT
  Age: 54 Year
  Sex: Male
  Weight: 80.2867 kg

DRUGS (5)
  1. DECADRON [Concomitant]
  2. XANAX [Concomitant]
  3. LORTAB [Concomitant]
  4. MELPHALAN HYDROCHLORIDE [Concomitant]
  5. REVLIMID [Suspect]
     Indication: MULTIPLE MYELOMA
     Dosage: 5 MG, DAILY X 21 DAYS, PO
     Route: 048
     Dates: start: 20100801, end: 20111101

REACTIONS (4)
  - PLATELET COUNT DECREASED [None]
  - NEUTROPHIL COUNT DECREASED [None]
  - WHITE BLOOD CELL COUNT DECREASED [None]
  - HAEMOGLOBIN DECREASED [None]
